FAERS Safety Report 19354540 (Version 1)
Quarter: 2021Q2

REPORT INFORMATION
  Report Type: Spontaneous
  Country: US (occurrence: US)
  Receive Date: 20210601
  Receipt Date: 20210601
  Transmission Date: 20210717
  Serious: Yes (Other)
  Sender: FDA-Public Use
  Company Number: None

PATIENT
  Age: 37 Year
  Sex: Female

DRUGS (1)
  1. AUBAGIO [Suspect]
     Active Substance: TERIFLUNOMIDE
     Route: 048
     Dates: start: 202103

REACTIONS (5)
  - Ocular hyperaemia [None]
  - Eye pruritus [None]
  - Eye irritation [None]
  - Photophobia [None]
  - Eye discharge [None]

NARRATIVE: CASE EVENT DATE: 20210601
